FAERS Safety Report 23835602 (Version 3)
Quarter: 2025Q4

REPORT INFORMATION
  Report Type: Report from Study
  Country: EG (occurrence: EG)
  Receive Date: 20240509
  Receipt Date: 20251103
  Transmission Date: 20260117
  Serious: Yes (Other)
  Sender: NOVARTIS
  Company Number: EG-002147023-NVSC2024EG093085

PATIENT
  Age: 80 Year
  Sex: Female

DRUGS (9)
  1. ENTRESTO [Suspect]
     Active Substance: SACUBITRIL\VALSARTAN
     Indication: Heart failure with reduced ejection fraction
     Dosage: 0.5 DOSAGE FORM, BID
     Route: 048
     Dates: start: 20240121, end: 20240429
  2. ENTRESTO [Suspect]
     Active Substance: SACUBITRIL\VALSARTAN
     Dosage: 1 DOSAGE FORM, BID
     Route: 048
     Dates: start: 20240429
  3. ENTRESTO [Suspect]
     Active Substance: SACUBITRIL\VALSARTAN
     Dosage: 100 MG (HALF TABLET TWICE DAILY)
     Route: 048
     Dates: start: 2024
  4. ENTRESTO [Suspect]
     Active Substance: SACUBITRIL\VALSARTAN
     Dosage: 200 MG, BID (1/2 TABLET TWICE DAILY) (HALF TABLET TWICE DAILY)
     Route: 048
     Dates: end: 20251006
  5. ENTRESTO [Suspect]
     Active Substance: SACUBITRIL\VALSARTAN
     Dosage: 200 MG (QUARTER TABLET TWICE DAILY)
     Route: 048
     Dates: start: 20251006
  6. NEBIVOLOL HYDROCHLORIDE [Concomitant]
     Active Substance: NEBIVOLOL HYDROCHLORIDE
     Indication: Cardiac failure
     Dosage: 2.5 MG, QD (DOSE REDUCED TO NEVILOB 2.5MG HALF TABLET ONCE DAILY)
     Route: 048
     Dates: start: 2004, end: 20251006
  7. NEBIVOLOL HYDROCHLORIDE [Concomitant]
     Active Substance: NEBIVOLOL HYDROCHLORIDE
     Dosage: 2.5 MG (HALF TABLET ONCE DAILY)
     Route: 048
  8. Tensopleron [Concomitant]
     Indication: Cardiac failure
     Dosage: 1 DOSAGE FORM, QD (DOSE REDUCED TO TENSOPLERON HALF TABLET ONCE DAILY)
     Route: 048
     Dates: start: 2004, end: 20251006
  9. Tensopleron [Concomitant]
     Dosage: UNK (HALF TABLET ONCE DAILY), QD
     Route: 048

REACTIONS (7)
  - Loss of consciousness [Recovered/Resolved]
  - Hypotension [Recovered/Resolved]
  - Dizziness [Recovered/Resolved]
  - Dizziness postural [Not Recovered/Not Resolved]
  - Blood sodium decreased [Unknown]
  - Haemoglobin decreased [Unknown]
  - Off label use [Unknown]

NARRATIVE: CASE EVENT DATE: 20240121
